FAERS Safety Report 7602517-5 (Version None)
Quarter: 2011Q3

REPORT INFORMATION
  Report Type: 
  Country: None (occurrence: None)
  Receive Date: 20110701
  Receipt Date: 20110616
  Transmission Date: 20111222
  Serious: Yes (Hospitalization)
  Sender: FDA-Public Use
  Company Number: 2011HGS-002359

PATIENT
  Age: 82 Year
  Sex: Female
  Weight: 70.3075 kg

DRUGS (15)
  1. PREDNISONE [Concomitant]
  2. SPIRONOLACTONE [Concomitant]
  3. ALPRAZOLAM [Concomitant]
  4. GABAPENTIN (GABAPENTIN) (GABAPENTIN) [Concomitant]
  5. NITROFURANTOIN (NITROFURANTOIN) (NITROFURANTOIN) [Concomitant]
  6. DIGOXIN [Concomitant]
  7. COUMADIN [Concomitant]
  8. ALLOPURINOL [Concomitant]
  9. ACYCLOVIR (ACICLOVIR) (ACICLOVIR) [Concomitant]
  10. AMLODIPINE [Concomitant]
  11. DHEA (PRASTERONE) (PRASTERONE) [Concomitant]
  12. BABY ASPIRIN (ACETYLSALICYLIC ACID) (ACETYLSALICYLIC ACID) [Concomitant]
  13. BENLYSTA [Suspect]
     Indication: SYSTEMIC LUPUS ERYTHEMATOSUS
     Dosage: 10 MG/KG, 1 IN 28 D, INTRAVENOUS DRIP
     Route: 041
     Dates: start: 20110505, end: 20110519
  14. OMEPRAZOLE [Concomitant]
  15. FOSAMAX [Concomitant]

REACTIONS (11)
  - FEELING ABNORMAL [None]
  - FEAR OF DISEASE [None]
  - FALL [None]
  - NO THERAPEUTIC RESPONSE [None]
  - HYPERTENSION [None]
  - ASTHENIA [None]
  - SPEECH DISORDER [None]
  - THINKING ABNORMAL [None]
  - DEPRESSED LEVEL OF CONSCIOUSNESS [None]
  - BALANCE DISORDER [None]
  - HYPOKINESIA [None]
